FAERS Safety Report 9598520 (Version 1)
Quarter: 2013Q4

REPORT INFORMATION
  Report Type: Spontaneous
  Country: US (occurrence: US)
  Receive Date: 20131004
  Receipt Date: 20131004
  Transmission Date: 20140711
  Serious: No
  Sender: FDA-Public Use
  Company Number: US-AMGEN-USASP2013023896

PATIENT
  Age: 58 Year
  Sex: Female
  Weight: 92.97 kg

DRUGS (13)
  1. ENBREL [Suspect]
     Indication: PRODUCT USED FOR UNKNOWN INDICATION
     Dosage: 50 MG, QWK
     Route: 058
     Dates: start: 201302
  2. CITALOPRAM [Concomitant]
     Dosage: 10 MG, UNK
  3. METHOTREXATE [Concomitant]
     Dosage: 2.5 MG, UNK
  4. ZYRTEC [Concomitant]
     Dosage: 5 MG, UNK
  5. OMEPRAZOLE [Concomitant]
     Dosage: 10 MG, UNK
  6. PRAVASTATIN [Concomitant]
     Dosage: 40 MG, UNK
  7. BROMFENAC [Concomitant]
     Dosage: 0.09 %, UNK
  8. MULTIVITAMINS, PLAIN [Concomitant]
     Dosage: UNK
  9. ADVIL                              /00044201/ [Concomitant]
     Dosage: 200 MG, UNK
  10. ESTER-C                            /00008001/ [Concomitant]
     Dosage: UNK
  11. OMEGA-3                            /01866101/ [Concomitant]
     Dosage: UNK
  12. FOLIC ACID [Concomitant]
     Dosage: UNK
  13. MOVE FREE [Concomitant]
     Dosage: 500-400

REACTIONS (5)
  - Injection site erythema [Unknown]
  - Injection site swelling [Unknown]
  - Injection site pruritus [Unknown]
  - Drug ineffective [Unknown]
  - Injection site reaction [Unknown]
